FAERS Safety Report 18968964 (Version 1)
Quarter: 2021Q1

REPORT INFORMATION
  Report Type: Spontaneous
  Country: US (occurrence: US)
  Receive Date: 20210304
  Receipt Date: 20210304
  Transmission Date: 20210420
  Serious: No
  Sender: FDA-Public Use
  Company Number: None

PATIENT
  Age: 62 Year
  Sex: Female
  Weight: 96.75 kg

DRUGS (8)
  1. PROBIOTICS [Concomitant]
     Active Substance: PROBIOTICS NOS
  2. CALCIUM CHEWS PLUS VIT D [Concomitant]
  3. D?AMPHETAMINE [Concomitant]
     Active Substance: DEXTROAMPHETAMINE
  4. OMEGA?3 ACIDS [Concomitant]
     Active Substance: OMEGA-3 FATTY ACIDS
  5. DEXTROAMPHET SACCHARAT, AMPHET ASPARTATE, DEXTROAMPHET SULFATE AND AMPHET SULFAT [Suspect]
     Active Substance: AMPHETAMINE ASPARTATE\AMPHETAMINE SULFATE\DEXTROAMPHETAMINE SACCHARATE\DEXTROAMPHETAMINE SULFATE
     Indication: NARCOLEPSY
     Dosage: ?          QUANTITY:30 CAPSULE(S);?
     Route: 048
     Dates: start: 20210112, end: 20210212
  6. ZINC 50 MG [Concomitant]
  7. BARI LIQUID FORCE VITAMINS [Concomitant]
  8. DULXETINE DR [Concomitant]

REACTIONS (4)
  - Product substitution issue [None]
  - Dyspepsia [None]
  - Fatigue [None]
  - Drug ineffective [None]

NARRATIVE: CASE EVENT DATE: 20210112
